FAERS Safety Report 5145834-3 (Version None)
Quarter: 2006Q4

REPORT INFORMATION
  Report Type: 
  Country: None (occurrence: None)
  Receive Date: 20061108
  Receipt Date: 20061031
  Transmission Date: 20070319
  Serious: Yes (Hospitalization)
  Sender: FDA-Public Use
  Company Number: JP-JNJFOC-20061101219

PATIENT
  Sex: Male

DRUGS (5)
  1. RISPERDAL [Suspect]
     Indication: SCHIZOPHRENIA, PARANOID TYPE
     Route: 048
  2. URSODESOXYCHOLIC ACID [Concomitant]
     Indication: CHRONIC HEPATITIS
     Route: 048
  3. ASCATE [Concomitant]
     Indication: HYPOKALAEMIA
     Route: 048
  4. BROTIZOLAM [Concomitant]
     Indication: INSOMNIA
     Route: 048
  5. CYSVON [Concomitant]
     Indication: INSOMNIA
     Route: 048

REACTIONS (1)
  - HOSPITALISATION [None]
